FAERS Safety Report 5766838-3 (Version None)
Quarter: 2008Q2

REPORT INFORMATION
  Report Type: 
  Country: None (occurrence: None)
  Receive Date: 20080609
  Receipt Date: 20080605
  Transmission Date: 20081010
  Serious: Yes (Death, Hospitalization, Other)
  Sender: FDA-Public Use
  Company Number: 2008SP005261

PATIENT
  Age: 64 Year
  Sex: Female

DRUGS (12)
  1. TEMODAL [Suspect]
     Indication: GLIOBLASTOMA
     Dosage: 75 MCG/M2;QD;PO
     Route: 048
     Dates: start: 20080205, end: 20080311
  2. OMEPRAZOLE [Concomitant]
  3. FORTECORTIN [Concomitant]
  4. KEPPRA [Concomitant]
  5. FRISIUM [Concomitant]
  6. NORVASC [Concomitant]
  7. MOXONIBENE [Concomitant]
  8. SEREVENT [Concomitant]
  9. FLIXOTIDE [Concomitant]
  10. PANTOPRAZOLE SODIUM [Concomitant]
  11. EPILAN D [Concomitant]
  12. RESPICR [Concomitant]

REACTIONS (7)
  - GENERAL PHYSICAL HEALTH DETERIORATION [None]
  - HAEMORRHAGE [None]
  - NEOPLASM PROGRESSION [None]
  - SOMNOLENCE [None]
  - THROMBOCYTOPENIA [None]
  - TUMOUR NECROSIS [None]
  - WHITE BLOOD CELL COUNT DECREASED [None]
